FAERS Safety Report 5796764-5 (Version None)
Quarter: 2008Q3

REPORT INFORMATION
  Report Type: 
  Country: None (occurrence: None)
  Receive Date: 20080701
  Receipt Date: 20070131
  Transmission Date: 20090109
  Serious: Yes (Hospitalization)
  Sender: FDA-Public Use
  Company Number: US-ROCHE-481020

PATIENT
  Age: 65 Year
  Sex: Female

DRUGS (3)
  1. PEGASYS [Suspect]
     Route: 065
  2. PEGASYS [Suspect]
     Route: 065
  3. RIBAVIRIN [Suspect]
     Route: 065

REACTIONS (1)
  - DEMYELINATING POLYNEUROPATHY [None]
